FAERS Safety Report 15366402 (Version 1)
Quarter: 2018Q3

REPORT INFORMATION
  Report Type: Spontaneous
  Country: US (occurrence: US)
  Receive Date: 20180910
  Receipt Date: 20180910
  Transmission Date: 20181010
  Serious: Yes (Hospitalization, Other)
  Sender: FDA-Public Use
  Company Number: US-TORRENT-00006839

PATIENT
  Age: 49 Year
  Sex: Male

DRUGS (1)
  1. CARBAMAZEPINE. [Suspect]
     Active Substance: CARBAMAZEPINE
     Indication: SEIZURE
     Dosage: UNKNOWN

REACTIONS (3)
  - Pancreatitis acute [Recovered/Resolved]
  - Cholangitis [Recovered/Resolved]
  - Drug-induced liver injury [Recovering/Resolving]
